FAERS Safety Report 25381903 (Version 1)
Quarter: 2025Q2

REPORT INFORMATION
  Report Type: Spontaneous
  Country: GB (occurrence: GB)
  Receive Date: 20250531
  Receipt Date: 20250531
  Transmission Date: 20250716
  Serious: Yes (Other)
  Sender: AUROBINDO
  Company Number: GB-MHRA-MED-202505151422596950-THYPK

PATIENT
  Age: 49 Year
  Sex: Male

DRUGS (1)
  1. DIMETHYL FUMARATE [Suspect]
     Active Substance: DIMETHYL FUMARATE
     Indication: Multiple sclerosis
     Dosage: 240 MILLIGRAM, TWO TIMES A DAY
     Route: 065

REACTIONS (6)
  - Hypertension [Unknown]
  - Feeling abnormal [Unknown]
  - Nausea [Unknown]
  - Bedridden [Unknown]
  - Eye disorder [Unknown]
  - Gait disturbance [Unknown]
